FAERS Safety Report 18509040 (Version 1)
Quarter: 2020Q4

REPORT INFORMATION
  Report Type: Spontaneous
  Country: US (occurrence: US)
  Receive Date: 20201117
  Receipt Date: 20201117
  Transmission Date: 20210114
  Serious: Yes (Hospitalization, Other)
  Sender: FDA-Public Use
  Company Number: US-AUROBINDO-AUR-APL-2020-055812

PATIENT
  Age: 27 Year
  Sex: Female

DRUGS (1)
  1. ACETAMINOPHEN TABLET [Suspect]
     Active Substance: ACETAMINOPHEN
     Indication: PAIN
     Dosage: 50 TABLETS OF ACETAMINOPHEN
     Route: 048

REACTIONS (10)
  - Acute hepatic failure [Recovering/Resolving]
  - Leukocytosis [Recovering/Resolving]
  - Tachycardia [Recovering/Resolving]
  - Acute kidney injury [Recovering/Resolving]
  - Hepatic encephalopathy [Recovering/Resolving]
  - Lymphopenia [Recovering/Resolving]
  - Hypoalbuminaemia [Recovering/Resolving]
  - Toxicity to various agents [Recovering/Resolving]
  - Overdose [Recovering/Resolving]
  - Thrombocytopenia [Recovering/Resolving]
